FAERS Safety Report 14874980 (Version 1)
Quarter: 2018Q2

REPORT INFORMATION
  Report Type: Spontaneous
  Country: GB (occurrence: GB)
  Receive Date: 20180510
  Receipt Date: 20180510
  Transmission Date: 20180711
  Serious: Yes (Hospitalization, Other)
  Sender: FDA-Public Use
  Company Number: GB-AUROBINDO-AUR-APL-2018-025108

PATIENT
  Age: 59 Year
  Sex: Male

DRUGS (33)
  1. VORICONAZOLE. [Suspect]
     Active Substance: VORICONAZOLE
     Indication: ACANTHAMOEBA KERATITIS
     Dosage: 2 DOSAGE FORM
     Route: 050
  2. HEXAMIDINE [Concomitant]
     Active Substance: HEXAMIDINE
     Dosage: UNK ()
  3. HEXAMIDINE [Concomitant]
     Active Substance: HEXAMIDINE
     Dosage: 0.1 %, UNK 2-HOURLY
     Route: 065
  4. TACROLIMUS. [Concomitant]
     Active Substance: TACROLIMUS
     Indication: TRANSPLANT FAILURE
     Dosage: 1 MG, BID
     Route: 048
  5. VORICONAZOLE. [Suspect]
     Active Substance: VORICONAZOLE
     Dosage: 800 MILLIGRAM
     Route: 050
  6. POLYHEXAMETHYLENE BIGUANIDE HYDROCHLORIDE [Suspect]
     Active Substance: POLIHEXANIDE HYDROCHLORIDE
     Indication: ACANTHAMOEBA KERATITIS
     Dosage: UNK ()
     Route: 065
  7. HEXAMIDINE [Concomitant]
     Active Substance: HEXAMIDINE
     Dosage: 0.1 %, UNK HOURLY
  8. MILTEFOSINE [Concomitant]
     Active Substance: MILTEFOSINE
     Dosage: ()
  9. PRED FORTE [Concomitant]
     Active Substance: PREDNISOLONE ACETATE
     Dosage: UNK, HOURLY ()
     Route: 065
  10. LEVOFLOXACIN. [Concomitant]
     Active Substance: LEVOFLOXACIN
     Indication: ACANTHAMOEBA KERATITIS
     Dosage: 0.5% HOURLY DAY AND NIGHT
     Route: 065
  11. LEVOFLOXACIN. [Concomitant]
     Active Substance: LEVOFLOXACIN
     Dosage: UNK, TWO HOURLY DAY ONLY ()
     Route: 065
  12. GENTAMICIN. [Concomitant]
     Active Substance: GENTAMICIN
     Indication: ACANTHAMOEBA KERATITIS
     Dosage: UNK, QID
     Route: 065
  13. HEXAMIDINE [Concomitant]
     Active Substance: HEXAMIDINE
     Indication: ACANTHAMOEBA KERATITIS
     Dosage: UNK ()
     Route: 065
  14. IMIDAZOLE [Concomitant]
     Active Substance: IMIDAZOLE
     Indication: ACANTHAMOEBA KERATITIS
     Dosage: UNK ()
     Route: 065
  15. MILTEFOSINE [Concomitant]
     Active Substance: MILTEFOSINE
     Indication: ACANTHAMOEBA KERATITIS
     Dosage: UNK ()
     Route: 048
  16. MILTEFOSINE [Concomitant]
     Active Substance: MILTEFOSINE
     Indication: PROPHYLAXIS
     Dosage: 50 MG, TID, 2.5 MG/KG/DAY
     Route: 048
  17. LEVOFLOXACIN. [Concomitant]
     Active Substance: LEVOFLOXACIN
     Dosage: 0.5 %, UNK (REDUCED TO HOURLY DAYTIME ONLY)
     Route: 065
  18. CEFUROXIME. [Concomitant]
     Active Substance: CEFUROXIME
     Indication: ACANTHAMOEBA KERATITIS
     Dosage: UNK, QID
     Route: 065
  19. VORICONAZOLE. [Suspect]
     Active Substance: VORICONAZOLE
     Dosage: 400 UNK
     Route: 065
  20. CHLORHEXIDINE [Suspect]
     Active Substance: CHLORHEXIDINE
     Indication: ACANTHAMOEBA KERATITIS
     Dosage: UNK ()
     Route: 065
  21. HEXAMIDINE [Concomitant]
     Active Substance: HEXAMIDINE
     Dosage: 0.02 %, UNK 4 TIMES DAILY
  22. HEXAMIDINE [Concomitant]
     Active Substance: HEXAMIDINE
     Dosage: 006 %, UNK, HOURLY DAY AND NIGHT
  23. DEXAMETHASONE. [Suspect]
     Active Substance: DEXAMETHASONE
     Indication: ACANTHAMOEBA KERATITIS
     Dosage: 0.1 %, QID
     Route: 065
  24. DEXAMETHASONE. [Suspect]
     Active Substance: DEXAMETHASONE
     Dosage: 0.1 %, UNK
     Route: 065
  25. POLYHEXAMETHYLENE BIGUANIDE HYDROCHLORIDE [Suspect]
     Active Substance: POLIHEXANIDE HYDROCHLORIDE
     Dosage: UNK ()
     Route: 065
  26. POSACONAZOLE [Suspect]
     Active Substance: POSACONAZOLE
     Indication: ACANTHAMOEBA KERATITIS
     Dosage: UNK ()
     Route: 048
  27. PRED FORTE [Concomitant]
     Active Substance: PREDNISOLONE ACETATE
     Indication: ACANTHAMOEBA KERATITIS
     Dosage: UNK, QID
     Route: 065
  28. GENTAMICIN. [Concomitant]
     Active Substance: GENTAMICIN
     Dosage: UNK, HOURLY DAY AND NIGHT ()
     Route: 065
  29. PREDNISOLONE. [Concomitant]
     Active Substance: PREDNISOLONE
     Indication: ACANTHAMOEBA KERATITIS
     Dosage: UNK, QID
     Route: 065
  30. VORICONAZOLE. [Suspect]
     Active Substance: VORICONAZOLE
     Dosage: 1 PERCENT
     Route: 065
  31. TACROLIMUS. [Concomitant]
     Active Substance: TACROLIMUS
     Indication: PROPHYLAXIS
     Dosage: ()
  32. METHYLPREDNISOLONE. [Concomitant]
     Active Substance: METHYLPREDNISOLONE
     Indication: ACANTHAMOEBA KERATITIS
     Dosage: 1 G, UNK
     Route: 042
  33. IMIDAZOLE [Concomitant]
     Active Substance: IMIDAZOLE
     Dosage: UNK ()
     Route: 065

REACTIONS (5)
  - Drug ineffective for unapproved indication [Unknown]
  - Condition aggravated [Unknown]
  - Adverse drug reaction [Unknown]
  - Acanthamoeba keratitis [Not Recovered/Not Resolved]
  - Product use in unapproved indication [Unknown]
